FAERS Safety Report 4871286-4 (Version None)
Quarter: 2005Q4

REPORT INFORMATION
  Report Type: 
  Country: None (occurrence: None)
  Receive Date: 20051229
  Receipt Date: 20051220
  Transmission Date: 20060501
  Serious: Yes (Other)
  Sender: FDA-Public Use
  Company Number: 2005S1000255

PATIENT
  Age: 49 Year
  Sex: Female
  Weight: 95 kg

DRUGS (19)
  1. CUBICIN [Suspect]
     Indication: WOUND INFECTION STAPHYLOCOCCAL
     Dosage: 680 MG; Q24H; IV
     Route: 042
     Dates: start: 20050831, end: 20050929
  2. CIPROFLOXACIN [Concomitant]
  3. CEFEPIME [Concomitant]
  4. ESCITALOPRAM OXALATE [Concomitant]
  5. FUROSEMIDE [Concomitant]
  6. GLIPIZIDE [Concomitant]
  7. METHYLPHENIDATE HCL [Concomitant]
  8. METOCLOPRAMIDE [Concomitant]
  9. METOPROLOL [Concomitant]
  10. PANTOPRAZOLE [Concomitant]
  11. PHENYTOIN SODIUM CAP [Concomitant]
  12. INSULIN [Concomitant]
  13. PROMETHAZINE [Concomitant]
  14. HEPARIN [Concomitant]
  15. METRONIDAZOLE [Concomitant]
  16. MORPHINE [Concomitant]
  17. PHYTONADIONE [Concomitant]
  18. ALBUMIN (HUMAN) [Concomitant]
  19. METOLAZONE [Concomitant]

REACTIONS (1)
  - RENAL TUBULAR NECROSIS [None]
